FAERS Safety Report 23110382 (Version 1)
Quarter: 2023Q4

REPORT INFORMATION
  Report Type: Spontaneous
  Country: ES (occurrence: ES)
  Receive Date: 20231026
  Receipt Date: 20231026
  Transmission Date: 20240110
  Serious: Yes (Other)
  Sender: FDA-Public Use
  Company Number: ES-AMGEN-ESPSP2023184222

PATIENT
  Age: 52 Year
  Sex: Female

DRUGS (4)
  1. XGEVA [Suspect]
     Active Substance: DENOSUMAB
     Indication: Metastases to bone
     Dosage: 120 MILLIGRAM, Q4WK
     Route: 058
     Dates: start: 202009
  2. RIBOCICLIB [Concomitant]
     Active Substance: RIBOCICLIB
     Dosage: 600 MILLIGRAM (Q3/4W)
     Route: 048
     Dates: start: 202009
  3. FULVESTRANT [Concomitant]
     Active Substance: FULVESTRANT
     Dosage: 500 MILLIGRAM, Q4WK
     Route: 030
     Dates: start: 202009
  4. LETROZOLE [Concomitant]
     Active Substance: LETROZOLE
     Indication: Uterine polyp
     Dosage: UNK

REACTIONS (5)
  - Lymphangiosis carcinomatosa [Recovered/Resolved]
  - Breast cancer metastatic [Unknown]
  - Mucosal inflammation [Unknown]
  - Dry skin [Unknown]
  - Alopecia [Unknown]

NARRATIVE: CASE EVENT DATE: 20200101
